FAERS Safety Report 9787953 (Version 2)
Quarter: 2014Q1

REPORT INFORMATION
  Report Type: Spontaneous
  Country: US (occurrence: US)
  Receive Date: 20131230
  Receipt Date: 20140211
  Transmission Date: 20141002
  Serious: Yes (Death)
  Sender: FDA-Public Use
  Company Number: US-ASTELLAS-2013US013395

PATIENT
  Sex: Male

DRUGS (20)
  1. XTANDI [Suspect]
     Indication: PROSTATE CANCER METASTATIC
     Dosage: 160 MG, UID/QD
     Route: 048
     Dates: start: 20130726, end: 20130906
  2. ACETAMINOPHEN [Concomitant]
     Indication: PRODUCT USED FOR UNKNOWN INDICATION
     Dosage: 1000 MG, Q6 HOURS, PRN
     Route: 048
  3. CASODEX [Concomitant]
     Indication: PRODUCT USED FOR UNKNOWN INDICATION
     Dosage: 50 MG, UID/QD
     Route: 048
  4. FENTANYL [Concomitant]
     Indication: PRODUCT USED FOR UNKNOWN INDICATION
     Dosage: 50 UG/ML, PRN
     Route: 042
  5. FUROSEMIDE [Concomitant]
     Indication: PRODUCT USED FOR UNKNOWN INDICATION
     Dosage: 40 MG, UID/QD, IN THE MORNING
     Route: 048
  6. HYDROCODONE/ACETAMINOPHEN          /01554201/ [Concomitant]
     Indication: PRODUCT USED FOR UNKNOWN INDICATION
     Dosage: 1 DF, Q6 HOURS,PRN
     Route: 048
  7. IBUPROFEN [Concomitant]
     Indication: PRODUCT USED FOR UNKNOWN INDICATION
     Dosage: 400 MG, Q6 HOURS,PRN
     Route: 048
  8. IMODIUM A-D [Concomitant]
     Indication: DIARRHOEA
     Dosage: 2 MG BY MOUTH AS DIRECTED AFTER EACH DIARRHEA STOOL NO MORE THAN 6 IN 24 HOURS
     Route: 048
  9. LORAZEPAM [Concomitant]
     Indication: PRODUCT USED FOR UNKNOWN INDICATION
     Dosage: 1 OR 2 BY MOUTH EVERY TWO HOURS AS NEEDED
  10. ONDANSETRON HCL [Concomitant]
     Indication: NAUSEA
     Dosage: 1 DF, AT BEDTIME THE DAY OF CHEMOTHERAPY AND 1 TABLET THE MORNING AFTER CHEMOTHERAPY
     Route: 048
  11. ONDANSETRON HCL [Concomitant]
     Indication: VOMITING
  12. OXYCODONE [Concomitant]
     Indication: PAIN
     Dosage: 1 OR 2 TABLET(S) (10 MG) BY MOUTH EVERY TWO HOURS AS NEEDED
     Route: 048
  13. KLOR-CON M10 [Concomitant]
     Indication: PRODUCT USED FOR UNKNOWN INDICATION
     Dosage: 20 MEQ, BID, TAKE WITH FOOD OR MILK
     Route: 048
  14. PREDNISONE [Concomitant]
     Indication: PRODUCT USED FOR UNKNOWN INDICATION
     Dosage: 5 MG, BID, START AFTER DEXAMETHASONE IS COMPLETED  TAKE WITH FOOD OR MILK
     Route: 048
  15. PROCHLORPERAZINE MALEATE [Concomitant]
     Indication: NAUSEA
     Dosage: 10 MG, Q6 HOURS, PRN
     Route: 048
  16. PROCHLORPERAZINE MALEATE [Concomitant]
     Indication: VOMITING
  17. CEPHALEXIN                         /00145501/ [Concomitant]
     Indication: PRODUCT USED FOR UNKNOWN INDICATION
     Dosage: 500 MG, TID
     Route: 048
  18. DEXAMETHASONE [Concomitant]
     Indication: PREMEDICATION
     Dosage: 4MG, 3 TIMES DAILY FOR 3 DAYS, 4MG TWICE DAILY FOR 3 DAYS, 4MG DAILY FOR 3 DAYS, THEN STOP
     Route: 048
  19. CIPROFLOXACIN [Concomitant]
     Indication: PRODUCT USED FOR UNKNOWN INDICATION
     Dosage: 500 MG, Q12 HOURS
     Route: 048
  20. ZYTIGA [Concomitant]
     Indication: PRODUCT USED FOR UNKNOWN INDICATION
     Dosage: 1000 MG, UID/QD
     Route: 048

REACTIONS (1)
  - Malignant neoplasm progression [Fatal]
